FAERS Safety Report 17888497 (Version 1)
Quarter: 2020Q2

REPORT INFORMATION
  Report Type: Spontaneous
  Country: US (occurrence: US)
  Receive Date: 20200611
  Receipt Date: 20200611
  Transmission Date: 20200714
  Serious: Yes (Hospitalization, Other)
  Sender: FDA-Public Use
  Company Number: None

PATIENT
  Age: 62 Year
  Sex: Male
  Weight: 75 kg

DRUGS (5)
  1. ERDAFITINIB. [Suspect]
     Active Substance: ERDAFITINIB
     Indication: TRANSITIONAL CELL CANCER OF RENAL PELVIS AND URETER METASTATIC
     Dates: start: 20200522, end: 20200529
  2. OXYOCODONE [Concomitant]
  3. METOPROLOL. [Concomitant]
     Active Substance: METOPROLOL
  4. LISINOPRIL. [Concomitant]
     Active Substance: LISINOPRIL
  5. ATORVASTATIN [Concomitant]
     Active Substance: ATORVASTATIN
     Dates: start: 20200123, end: 20200529

REACTIONS (11)
  - Bile duct obstruction [None]
  - Transaminases [None]
  - Aspartate aminotransferase increased [None]
  - Blood bilirubin increased [None]
  - Blood alkaline phosphatase increased [None]
  - Hepatocellular injury [None]
  - Portal fibrosis [None]
  - Toxicity to various agents [None]
  - Cholestasis [None]
  - Alanine aminotransferase increased [None]
  - Cholangitis [None]

NARRATIVE: CASE EVENT DATE: 20200528
